FAERS Safety Report 18687004 (Version 1)
Quarter: 2020Q4

REPORT INFORMATION
  Report Type: Spontaneous
  Country: CN (occurrence: CN)
  Receive Date: 20201231
  Receipt Date: 20201231
  Transmission Date: 20210114
  Serious: Yes (Other)
  Sender: FDA-Public Use
  Company Number: CN-BAYER-2020-285518

PATIENT
  Age: 50 Year
  Sex: Female

DRUGS (1)
  1. ULTRAVIST [Suspect]
     Active Substance: IOPROMIDE
     Indication: ANGIOGRAM
     Dosage: 50 ML, ONCE
     Route: 045
     Dates: start: 20201221, end: 20201221

REACTIONS (3)
  - Volvulus [Recovering/Resolving]
  - Nausea [Recovering/Resolving]
  - Incorrect route of product administration [None]

NARRATIVE: CASE EVENT DATE: 20201221
